FAERS Safety Report 4310547-4 (Version None)
Quarter: 2004Q1

REPORT INFORMATION
  Report Type: 
  Country: None (occurrence: None)
  Receive Date: 20040303
  Receipt Date: 20040120
  Transmission Date: 20041129
  Serious: Yes (Hospitalization)
  Sender: FDA-Public Use
  Company Number: JP-GLAXOSMITHKLINE-B0320735A

PATIENT
  Age: 45 Year
  Sex: Female
  Weight: 50 kg

DRUGS (1)
  1. ZANTAC [Suspect]
     Indication: DUODENAL ULCER
     Dosage: 300MG PER DAY
     Route: 048
     Dates: start: 20020814, end: 20020814

REACTIONS (5)
  - ANAPHYLACTIC SHOCK [None]
  - ASTHENIA [None]
  - DEPRESSED LEVEL OF CONSCIOUSNESS [None]
  - HEMIPLEGIA [None]
  - RASH [None]
